FAERS Safety Report 18108632 (Version 4)
Quarter: 2022Q1

REPORT INFORMATION
  Report Type: Spontaneous
  Country: JP (occurrence: JP)
  Receive Date: 20200804
  Receipt Date: 20220302
  Transmission Date: 20220424
  Serious: Yes (Life-Threatening, Hospitalization)
  Sender: FDA-Public Use
  Company Number: JP-JNJFOC-20200747666

PATIENT
  Age: 72 Year
  Sex: Male
  Weight: 47 kg

DRUGS (7)
  1. TREMFYA [Suspect]
     Active Substance: GUSELKUMAB
     Indication: Psoriasis
     Dosage: INJECTION EVERY 4-8 WEEKS
     Route: 058
     Dates: start: 20200529, end: 20200529
  2. TREMFYA [Suspect]
     Active Substance: GUSELKUMAB
  3. TREMFYA [Suspect]
     Active Substance: GUSELKUMAB
  4. BETAMETHASONE\CALCIPOTRIENE [Concomitant]
     Active Substance: BETAMETHASONE\CALCIPOTRIENE
     Indication: Psoriasis
     Route: 061
     Dates: start: 20200529
  5. BETAMETHASONE\CALCIPOTRIENE [Concomitant]
     Active Substance: BETAMETHASONE\CALCIPOTRIENE
     Dosage: MEDICINE FOR EXTERNAL USE
     Route: 061
     Dates: start: 20200529
  6. OXAROL [Concomitant]
     Active Substance: MAXACALCITOL
     Indication: Psoriasis
     Route: 061
     Dates: start: 20200529
  7. TACALCITOL [Concomitant]
     Active Substance: TACALCITOL
     Indication: Psoriasis
     Route: 061

REACTIONS (2)
  - Pneumocystis jirovecii pneumonia [Recovered/Resolved]
  - Interstitial lung disease [Recovered/Resolved]

NARRATIVE: CASE EVENT DATE: 20200615
